FAERS Safety Report 19718196 (Version 1)
Quarter: 2021Q3

REPORT INFORMATION
  Report Type: Spontaneous
  Country: BR (occurrence: BR)
  Receive Date: 20210819
  Receipt Date: 20210819
  Transmission Date: 20211014
  Serious: Yes (Other)
  Sender: FDA-Public Use
  Company Number: BR-PFIZER INC-202101029316

PATIENT
  Age: 86 Year
  Sex: Male

DRUGS (2)
  1. LYRICA [Suspect]
     Active Substance: PREGABALIN
     Indication: SPINAL DISORDER
     Dosage: 75 MG
  2. LYRICA [Suspect]
     Active Substance: PREGABALIN
     Dosage: A CAPSULE OF 150MG IN THE DAY AND A CAPSULE OF 75 MG AT NIGHT

REACTIONS (4)
  - Spinal pain [Unknown]
  - Pain [Unknown]
  - Mobility decreased [Unknown]
  - Gait inability [Unknown]
